FAERS Safety Report 23054835 (Version 1)
Quarter: 2023Q4

REPORT INFORMATION
  Report Type: Spontaneous
  Country: US (occurrence: None)
  Receive Date: 20231010
  Receipt Date: 20231010
  Transmission Date: 20240110
  Serious: Yes (Other)
  Sender: FDA-Public Use
  Company Number: None

PATIENT
  Sex: Female

DRUGS (1)
  1. SODIUM FLUORIDE 5000 PPM [Suspect]
     Active Substance: SODIUM FLUORIDE

REACTIONS (5)
  - Tongue discomfort [None]
  - Tongue coated [None]
  - Nausea [None]
  - Glossodynia [None]
  - Oral discomfort [None]
